FAERS Safety Report 25149648 (Version 1)
Quarter: 2025Q2

REPORT INFORMATION
  Report Type: Spontaneous
  Country: IT (occurrence: IT)
  Receive Date: 20250402
  Receipt Date: 20250402
  Transmission Date: 20250717
  Serious: Yes (Other)
  Sender: HIKMA
  Company Number: IT-HIKMA PHARMACEUTICALS-IT-H14001-25-02734

PATIENT

DRUGS (2)
  1. CISPLATIN [Suspect]
     Active Substance: CISPLATIN
     Indication: Undifferentiated nasopharyngeal carcinoma
     Route: 065
     Dates: start: 202402
  2. GEMCITABINE [Suspect]
     Active Substance: GEMCITABINE
     Indication: Undifferentiated nasopharyngeal carcinoma
     Route: 065
     Dates: start: 202402

REACTIONS (2)
  - Thrombocytopenia [Unknown]
  - Tinnitus [Unknown]
